FAERS Safety Report 9904820 (Version 1)
Quarter: 2014Q1

REPORT INFORMATION
  Report Type: Spontaneous
  Country: US (occurrence: None)
  Receive Date: 20140212
  Receipt Date: 20140212
  Transmission Date: 20141002
  Serious: Yes (Other)
  Sender: FDA-Public Use
  Company Number: None

PATIENT
  Age: 69 Year
  Sex: Female
  Weight: 72.58 kg

DRUGS (1)
  1. METHYLPHENIDATE HCI ER 54 MG MALLINCKRODT [Suspect]
     Indication: ATTENTION DEFICIT/HYPERACTIVITY DISORDER
     Route: 048
     Dates: start: 20140208, end: 20140210

REACTIONS (11)
  - Product substitution issue [None]
  - Product quality issue [None]
  - Tongue disorder [None]
  - Anxiety [None]
  - Agitation [None]
  - Irritability [None]
  - Impaired work ability [None]
  - Impaired driving ability [None]
  - Feeling of despair [None]
  - Depression [None]
  - Product substitution issue [None]
